FAERS Safety Report 5796643-3 (Version None)
Quarter: 2008Q2

REPORT INFORMATION
  Report Type: 
  Country: None (occurrence: None)
  Receive Date: 20080630
  Receipt Date: 20080630
  Transmission Date: 20081010
  Serious: Yes (Hospitalization)
  Sender: FDA-Public Use
  Company Number: None

PATIENT
  Sex: Male
  Weight: 79 kg

DRUGS (1)
  1. CISPLATIN [Suspect]
     Dosage: 212 MG
     Dates: end: 20080604

REACTIONS (5)
  - CHILLS [None]
  - FEBRILE NEUTROPENIA [None]
  - MUCOSAL INFLAMMATION [None]
  - PNEUMONIA [None]
  - TACHYCARDIA [None]
